FAERS Safety Report 8513229-8 (Version None)
Quarter: 2012Q3

REPORT INFORMATION
  Report Type: 
  Country: None (occurrence: None)
  Receive Date: 20120716
  Receipt Date: 20120711
  Transmission Date: 20120928
  Serious: Yes (Death, Other)
  Sender: FDA-Public Use
  Company Number: GB-ABBOTT-12P-167-0955687-00

PATIENT
  Age: 79 Year
  Sex: Female
  Weight: 55.4 kg

DRUGS (28)
  1. CLARITHROMYCIN [Suspect]
     Indication: PNEUMONIA
     Route: 048
     Dates: start: 20120512, end: 20120521
  2. AMOXICILLIN [Suspect]
     Indication: PRODUCT USED FOR UNKNOWN INDICATION
  3. SIMVASTATIN [Suspect]
     Indication: PRODUCT USED FOR UNKNOWN INDICATION
  4. CANDESARTAN [Concomitant]
     Indication: PRODUCT USED FOR UNKNOWN INDICATION
  5. FOLIC ACID [Concomitant]
     Indication: PRODUCT USED FOR UNKNOWN INDICATION
  6. FUROSEMIDE [Concomitant]
     Indication: PRODUCT USED FOR UNKNOWN INDICATION
  7. BISOPROLOL FUMARATE [Concomitant]
     Indication: PRODUCT USED FOR UNKNOWN INDICATION
  8. AMIODARONE HCL [Suspect]
     Indication: PRODUCT USED FOR UNKNOWN INDICATION
  9. HEPARIN [Concomitant]
     Indication: PULMONARY EMBOLISM
  10. METOCLOPRAMIDE [Concomitant]
     Indication: PRODUCT USED FOR UNKNOWN INDICATION
  11. ADCAL-D3 [Concomitant]
     Indication: PRODUCT USED FOR UNKNOWN INDICATION
  12. ACETAMINOPHEN AND CODEINE PHOSPHATE [Concomitant]
     Indication: PRODUCT USED FOR UNKNOWN INDICATION
  13. DICLOFENAC DIETHYLAMMONIUM SALT [Concomitant]
     Indication: PRODUCT USED FOR UNKNOWN INDICATION
  14. DALTEPARIN SODIUM [Concomitant]
     Indication: PRODUCT USED FOR UNKNOWN INDICATION
  15. TRAMADOL HCL [Concomitant]
     Indication: PRODUCT USED FOR UNKNOWN INDICATION
  16. METHOTREXATE [Suspect]
     Indication: PRODUCT USED FOR UNKNOWN INDICATION
  17. ACETAMINOPHEN [Concomitant]
     Indication: PRODUCT USED FOR UNKNOWN INDICATION
  18. FORTISIP [Concomitant]
     Indication: PRODUCT USED FOR UNKNOWN INDICATION
  19. SPIRONOLACTONE [Suspect]
     Indication: PRODUCT USED FOR UNKNOWN INDICATION
  20. OMEPRAZOLE [Concomitant]
     Indication: PRODUCT USED FOR UNKNOWN INDICATION
  21. CLOTRIMAZOLE [Concomitant]
     Indication: PRODUCT USED FOR UNKNOWN INDICATION
  22. BUMETANIDE [Suspect]
     Indication: PRODUCT USED FOR UNKNOWN INDICATION
  23. ADENOSINE [Concomitant]
     Indication: PRODUCT USED FOR UNKNOWN INDICATION
  24. AMOXICILLIN AND CLAVULANATE POTASSIUM [Concomitant]
     Indication: PRODUCT USED FOR UNKNOWN INDICATION
  25. SODIUM BICARBONATE [Concomitant]
     Indication: PRODUCT USED FOR UNKNOWN INDICATION
  26. TEICOPLANIN [Concomitant]
     Indication: PNEUMONIA
  27. GENTAMICIN [Concomitant]
     Indication: PRODUCT USED FOR UNKNOWN INDICATION
  28. BISOPROLOL FUMARATE [Concomitant]

REACTIONS (34)
  - STEVENS-JOHNSON SYNDROME [None]
  - RASH MACULO-PAPULAR [None]
  - FLUID OVERLOAD [None]
  - STAPHYLOCOCCAL SCALDED SKIN SYNDROME [None]
  - ADVERSE DRUG REACTION [None]
  - HAEMOGLOBIN DECREASED [None]
  - PULMONARY EMBOLISM [None]
  - PAIN [None]
  - SKIN IRRITATION [None]
  - OEDEMA PERIPHERAL [None]
  - RASH PRURITIC [None]
  - ATRIAL FIBRILLATION [None]
  - BLISTER [None]
  - RENAL FAILURE ACUTE [None]
  - BLOOD CREATININE INCREASED [None]
  - SKIN EROSION [None]
  - TOXIC EPIDERMAL NECROLYSIS [None]
  - PRURITUS [None]
  - ERYTHEMA [None]
  - SKIN SWELLING [None]
  - SKIN TIGHTNESS [None]
  - RASH GENERALISED [None]
  - PETECHIAE [None]
  - PULMONARY FIBROSIS [None]
  - MUCOSAL EROSION [None]
  - VASCULITIS [None]
  - ECZEMA [None]
  - RASH [None]
  - SKIN EXFOLIATION [None]
  - DIARRHOEA [None]
  - DRY SKIN [None]
  - HYPERSENSITIVITY [None]
  - EXFOLIATIVE RASH [None]
  - SCAB [None]
